FAERS Safety Report 10384112 (Version 2)
Quarter: 2014Q3

REPORT INFORMATION
  Report Type: Report from Study
  Country: FR (occurrence: FR)
  Receive Date: 20140814
  Receipt Date: 20140819
  Transmission Date: 20150326
  Serious: Yes (Hospitalization)
  Sender: FDA-Public Use
  Company Number: PHHY2014FR099012

PATIENT
  Age: 70 Year
  Sex: Male

DRUGS (1)
  1. EVEROLIMUS [Suspect]
     Active Substance: EVEROLIMUS
     Indication: RENAL CELL CARCINOMA
     Dosage: 10 MG, QD
     Dates: start: 201405, end: 20140625

REACTIONS (9)
  - Benign neoplasm of prostate [Unknown]
  - Urinary retention [Unknown]
  - Hypokalaemia [Unknown]
  - Haematuria [Unknown]
  - Renal failure acute [Unknown]
  - Metastases to the mediastinum [Unknown]
  - Hyponatraemia [Unknown]
  - Malignant neoplasm progression [Unknown]
  - Metastases to kidney [Unknown]

NARRATIVE: CASE EVENT DATE: 20140616
